FAERS Safety Report 16722425 (Version 2)
Quarter: 2019Q3

REPORT INFORMATION
  Report Type: Spontaneous
  Country: US (occurrence: US)
  Receive Date: 20190820
  Receipt Date: 20190925
  Transmission Date: 20191005
  Serious: No
  Sender: FDA-Public Use
  Company Number: US-VIFOR (INTERNATIONAL) INC.-VIT-2019-07504

PATIENT
  Age: 63 Year
  Sex: Female

DRUGS (5)
  1. TUBERSOL [Concomitant]
     Active Substance: TUBERCULIN PURIFIED PROTEIN DERIVATIVE
  2. VITAMIN D [Concomitant]
     Active Substance: VITAMIN D NOS
  3. MIRCERA [Suspect]
     Active Substance: METHOXY POLYETHYLENE GLYCOL-EPOETIN BETA
     Indication: ANAEMIA
     Dates: start: 20180815, end: 20190218
  4. MIRCERA [Suspect]
     Active Substance: METHOXY POLYETHYLENE GLYCOL-EPOETIN BETA
     Dates: start: 2019
  5. CALCITRIOL. [Concomitant]
     Active Substance: CALCITRIOL
     Route: 048

REACTIONS (4)
  - Bone pain [Not Recovered/Not Resolved]
  - Drug hypersensitivity [Recovered/Resolved]
  - Pain [Recovered/Resolved]
  - Headache [Recovered/Resolved]

NARRATIVE: CASE EVENT DATE: 20190218
